FAERS Safety Report 25655433 (Version 4)
Quarter: 2025Q4

REPORT INFORMATION
  Report Type: Report from Study
  Country: US (occurrence: US)
  Receive Date: 20250807
  Receipt Date: 20251224
  Transmission Date: 20260118
  Serious: No
  Sender: PFIZER
  Company Number: US-PFIZER INC-202500158243

PATIENT
  Age: 68 Year
  Sex: Female

DRUGS (1)
  1. VELSIPITY [Suspect]
     Active Substance: ETRASIMOD ARGININE
     Dosage: 2 MG

REACTIONS (4)
  - Drug ineffective [Unknown]
  - Condition aggravated [Unknown]
  - Headache [Unknown]
  - Hypersensitivity [Unknown]
